FAERS Safety Report 6795114-5 (Version None)
Quarter: 2010Q2

REPORT INFORMATION
  Report Type: 
  Country: None (occurrence: None)
  Receive Date: 20100625
  Receipt Date: 20100622
  Transmission Date: 20101027
  Serious: Yes (Death, Other)
  Sender: FDA-Public Use
  Company Number: PHHY2010CA40663

PATIENT
  Sex: Female

DRUGS (1)
  1. EXELON [Suspect]
     Route: 062

REACTIONS (5)
  - ACTIVITIES OF DAILY LIVING IMPAIRED [None]
  - DEATH [None]
  - DEHYDRATION [None]
  - GENERAL PHYSICAL HEALTH DETERIORATION [None]
  - HYPOPHAGIA [None]
